FAERS Safety Report 10382627 (Version 1)
Quarter: 2014Q3

REPORT INFORMATION
  Report Type: Spontaneous
  Country: US (occurrence: US)
  Receive Date: 20140813
  Receipt Date: 20140813
  Transmission Date: 20150326
  Serious: No
  Sender: FDA-Public Use
  Company Number: US-SA-2014SA009199

PATIENT
  Age: 91 Year
  Sex: Female

DRUGS (7)
  1. LISINOPRIL. [Concomitant]
     Active Substance: LISINOPRIL
  2. LASIX [Concomitant]
     Active Substance: FUROSEMIDE
  3. MULTAQ [Suspect]
     Active Substance: DRONEDARONE
     Indication: ATRIAL FIBRILLATION
     Route: 048
     Dates: start: 201312
  4. DIGOXIN. [Interacting]
     Active Substance: DIGOXIN
     Route: 065
  5. DILTIAZEM [Concomitant]
     Active Substance: DILTIAZEM
  6. WARFARIN [Concomitant]
     Active Substance: WARFARIN
  7. LISINOPRIL. [Concomitant]
     Active Substance: LISINOPRIL

REACTIONS (7)
  - Restlessness [Not Recovered/Not Resolved]
  - Blood pressure decreased [Not Recovered/Not Resolved]
  - Weight decreased [Not Recovered/Not Resolved]
  - Asthenia [Not Recovered/Not Resolved]
  - Heart rate decreased [Not Recovered/Not Resolved]
  - Peripheral coldness [Not Recovered/Not Resolved]
  - Labelled drug-drug interaction medication error [Unknown]
